FAERS Safety Report 17689058 (Version 1)
Quarter: 2020Q2

REPORT INFORMATION
  Report Type: Spontaneous
  Country: NL (occurrence: NL)
  Receive Date: 20200421
  Receipt Date: 20200421
  Transmission Date: 20200714
  Serious: Yes (Other)
  Sender: FDA-Public Use
  Company Number: NL-MYLANLABS-2020M1039682

PATIENT
  Sex: Male
  Weight: 65 kg

DRUGS (6)
  1. PANTOPRAZOL                        /01263201/ [Concomitant]
     Active Substance: PANTOPRAZOLE
     Dosage: MAAGSAPRESISTENTE TABLET, 20 MG (MILLIGRAM)
     Route: 065
  2. GLIMEPIRIDE. [Suspect]
     Active Substance: GLIMEPIRIDE
     Indication: BLOOD GLUCOSE INCREASED
     Dosage: UNK
     Route: 065
  3. LISINOPRIL. [Concomitant]
     Active Substance: LISINOPRIL
     Dosage: 20 MILLIGRAM
  4. METFORMINE                         /00082701/ [Concomitant]
     Active Substance: METFORMIN HYDROCHLORIDE
     Dosage: 500 MG 2X DAAGS TABLET
     Route: 065
  5. ACETYLSALICYLZUUR [Concomitant]
     Active Substance: ASPIRIN
     Dosage: 80 MILLIGRAM
  6. CORTISON [Concomitant]
     Active Substance: CORTISONE ACETATE
     Dosage: UNK
     Route: 065
     Dates: start: 20200124

REACTIONS (1)
  - Angina pectoris [Recovering/Resolving]
